FAERS Safety Report 10026832 (Version 2)
Quarter: 2014Q1

REPORT INFORMATION
  Report Type: Spontaneous
  Country: GB (occurrence: GB)
  Receive Date: 20140321
  Receipt Date: 20140321
  Transmission Date: 20141002
  Serious: Yes (Life-Threatening)
  Sender: FDA-Public Use
  Company Number: GB-ACCORD-022599

PATIENT
  Age: 60 Year
  Sex: Female

DRUGS (5)
  1. GEMCITABINE/GEMCITABINE HYDROCHLORIDE [Suspect]
     Indication: PRODUCT USED FOR UNKNOWN INDICATION
     Dosage: ON DAY OF 1,8, AND 15 OF A 28 DAY CYCLE.
  2. SULFAMETHOXAZOLE/TRIMETHOPRIM [Concomitant]
     Indication: PROPHYLAXIS
  3. GRANULOCYTE COLONY-STIMULATING FACTOR NOS [Concomitant]
     Indication: SUPPORTIVE CARE
  4. FLUCONAZOLE [Concomitant]
     Indication: PROPHYLAXIS
  5. ACICLOVIR/ACICLOVIR SODIUM [Concomitant]
     Indication: PROPHYLAXIS

REACTIONS (1)
  - Arteritis [Recovering/Resolving]
